FAERS Safety Report 4932942-2 (Version None)
Quarter: 2006Q1

REPORT INFORMATION
  Report Type: 
  Country: None (occurrence: None)
  Receive Date: 20060301
  Receipt Date: 20060223
  Transmission Date: 20060701
  Serious: No
  Sender: FDA-Public Use
  Company Number: TPA2006A00334

PATIENT

DRUGS (1)
  1. ACTOPLUS MET [Suspect]
     Dosage: 15/500 MG, TWICE DAILY, PER ORAL
     Route: 048

REACTIONS (1)
  - DRUG DISPENSING ERROR [None]
